APPROVED DRUG PRODUCT: LEVOTHYROXINE SODIUM
Active Ingredient: LEVOTHYROXINE SODIUM
Strength: 100MCG/ML
Dosage Form/Route: SOLUTION;INTRAVENOUS
Application: N214253 | Product #001
Applicant: HIKMA PHARMACEUTICALS USA INC
Approved: May 17, 2021 | RLD: Yes | RS: Yes | Type: RX

PATENTS:
Patent 11154498 | Expires: Jul 20, 2036